FAERS Safety Report 4810584-7 (Version None)
Quarter: 2005Q4

REPORT INFORMATION
  Report Type: 
  Country: None (occurrence: None)
  Receive Date: 20051025
  Receipt Date: 20051025
  Transmission Date: 20060501
  Serious: Yes (Hospitalization)
  Sender: FDA-Public Use
  Company Number: None

PATIENT
  Age: 89 Year
  Sex: Male
  Weight: 77 kg

DRUGS (8)
  1. WARFARIN 1MG BRISTOL MYERS SQUIBB [Suspect]
     Indication: ATRIAL FIBRILLATION
     Dosage: 1MG/2MG MWF+ROW PO
     Route: 048
     Dates: start: 20050621, end: 20051024
  2. TERAZOSIN HCL [Concomitant]
  3. SERTRALINE HCL [Concomitant]
  4. LISINOPRIL [Concomitant]
  5. FINASTERIDE [Concomitant]
  6. DILTIAZEM [Concomitant]
  7. CALCIUM CARBONATE [Concomitant]
  8. VITAMIN D [Concomitant]

REACTIONS (1)
  - DEEP VEIN THROMBOSIS [None]
